FAERS Safety Report 10616054 (Version 1)
Quarter: 2014Q4

REPORT INFORMATION
  Report Type: Spontaneous
  Country: DE (occurrence: DE)
  Receive Date: 20141201
  Receipt Date: 20141201
  Transmission Date: 20150529
  Serious: Yes (Congenital Anomaly)
  Sender: FDA-Public Use
  Company Number: DE-SA-2014SA164268

PATIENT

DRUGS (1)
  1. FERRLECIT [Suspect]
     Active Substance: SODIUM FERRIC GLUCONATE COMPLEX
     Dosage: STRENGTH: 62..5MG
     Route: 064

REACTIONS (3)
  - Mental disability [Not Recovered/Not Resolved]
  - Foetal exposure during pregnancy [Unknown]
  - Physical disability [Not Recovered/Not Resolved]
